FAERS Safety Report 23409405 (Version 3)
Quarter: 2024Q1

REPORT INFORMATION
  Report Type: Spontaneous
  Country: US (occurrence: US)
  Receive Date: 20240117
  Receipt Date: 20240311
  Transmission Date: 20240409
  Serious: No
  Sender: FDA-Public Use
  Company Number: US-ABBVIE-5588086

PATIENT
  Sex: Female
  Weight: 59 kg

DRUGS (5)
  1. HUMIRA [Suspect]
     Active Substance: ADALIMUMAB
     Indication: Rheumatoid arthritis
     Dosage: FORM STRENGTH: 40MG
     Route: 058
     Dates: start: 20240115
  2. HUMIRA [Suspect]
     Active Substance: ADALIMUMAB
     Dosage: FORM STRENGTH: 40MG
     Route: 058
     Dates: start: 20220124, end: 20230720
  3. HUMIRA [Suspect]
     Active Substance: ADALIMUMAB
     Dosage: FORM STRENGTH: 40MG
     Route: 058
     Dates: start: 2008
  4. INFLUENZA VIRUS VACCINE [Suspect]
     Active Substance: INFLUENZA VIRUS VACCINE
     Indication: Product used for unknown indication
     Route: 065
  5. MELOXICAM [Concomitant]
     Active Substance: MELOXICAM
     Indication: Product used for unknown indication

REACTIONS (21)
  - Grip strength decreased [Not Recovered/Not Resolved]
  - Throat irritation [Recovered/Resolved]
  - Cystitis [Recovered/Resolved]
  - Pain [Recovering/Resolving]
  - Rheumatoid arthritis [Recovered/Resolved]
  - Malaise [Recovered/Resolved]
  - Tooth infection [Recovered/Resolved]
  - Mobility decreased [Recovering/Resolving]
  - Immunisation reaction [Recovered/Resolved]
  - Movement disorder [Recovered/Resolved]
  - Sciatica [Recovering/Resolving]
  - Asthenia [Recovering/Resolving]
  - Sinus disorder [Recovered/Resolved]
  - Inflammation [Recovering/Resolving]
  - Stress [Unknown]
  - Infected bunion [Unknown]
  - Feeding disorder [Recovered/Resolved]
  - Pharyngeal disorder [Recovered/Resolved]
  - Weight decreased [Not Recovered/Not Resolved]
  - Insomnia [Recovering/Resolving]
  - Urinary tract infection [Unknown]

NARRATIVE: CASE EVENT DATE: 20190101
